FAERS Safety Report 11407162 (Version 3)
Quarter: 2016Q1

REPORT INFORMATION
  Report Type: Spontaneous
  Country: US (occurrence: US)
  Receive Date: 20150821
  Receipt Date: 20160122
  Transmission Date: 20160525
  Serious: Yes (Other)
  Sender: FDA-Public Use
  Company Number: US-NOVOPROD-416484

PATIENT
  Age: 78 Year
  Sex: Female
  Weight: 95.24 kg

DRUGS (1)
  1. VICTOZA [Suspect]
     Active Substance: LIRAGLUTIDE
     Indication: TYPE 2 DIABETES MELLITUS
     Dosage: UNK
     Route: 058
     Dates: start: 20121213, end: 20150902

REACTIONS (1)
  - Goitre [Not Recovered/Not Resolved]

NARRATIVE: CASE EVENT DATE: 201402
